FAERS Safety Report 5370098-5 (Version None)
Quarter: 2007Q2

REPORT INFORMATION
  Report Type: 
  Country: None (occurrence: None)
  Receive Date: 20070626
  Receipt Date: 20070606
  Transmission Date: 20071010
  Serious: Yes (Death, Life-Threatening, Hospitalization, Other)
  Sender: FDA-Public Use
  Company Number: ES-JNJFOC-20051104183

PATIENT
  Age: 35 Year
  Sex: Male

DRUGS (7)
  1. RISPERDAL [Suspect]
     Indication: MENTAL DISORDER
     Route: 048
  2. SERTRALINE HYDROCHLORIDE [Interacting]
     Indication: DYSTHYMIC DISORDER
     Route: 048
  3. CLONAZEPAM [Interacting]
     Indication: MENTAL DISORDER
     Route: 048
  4. SINOGAN [Interacting]
     Indication: MENTAL DISORDER
     Route: 048
  5. CIPROFLOXACIN HCL [Interacting]
     Indication: URINARY TRACT INFECTION
     Route: 048
  6. AUGMENTIN '125' [Interacting]
     Indication: RESPIRATORY TRACT INFECTION
     Route: 034
  7. OPIREN [Concomitant]
     Route: 048

REACTIONS (3)
  - AGRANULOCYTOSIS [None]
  - DRUG INTERACTION [None]
  - PNEUMONIA ASPIRATION [None]
